FAERS Safety Report 7680287-2 (Version None)
Quarter: 2011Q3

REPORT INFORMATION
  Report Type: 
  Country: None (occurrence: None)
  Receive Date: 20110811
  Receipt Date: 20110811
  Transmission Date: 20111222
  Serious: Yes (Hospitalization)
  Sender: FDA-Public Use
  Company Number: None

PATIENT
  Age: 69 Year
  Sex: Female

DRUGS (4)
  1. SPIRONOLACTONE [Concomitant]
  2. METOPROLOL [Concomitant]
  3. PROCRIT [Suspect]
     Indication: ANAEMIA OF CHRONIC DISEASE
     Dosage: 40,000 UNITS WEEKLY UNDER THE SKIN
     Dates: start: 20110523
  4. HYDROCHLOROTHIAZINE [Concomitant]

REACTIONS (1)
  - HAEMORRHAGE [None]
